FAERS Safety Report 20004334 (Version 1)
Quarter: 2021Q4

REPORT INFORMATION
  Report Type: Spontaneous
  Country: CN (occurrence: CN)
  Receive Date: 20211027
  Receipt Date: 20211027
  Transmission Date: 20220303
  Serious: Yes (Hospitalization, Other)
  Sender: FDA-Public Use
  Company Number: CN-ABBVIE-21K-035-4126641-00

PATIENT
  Age: 54 Year
  Sex: Male

DRUGS (4)
  1. VALPROATE SODIUM [Interacting]
     Active Substance: VALPROATE SODIUM
     Indication: Product used for unknown indication
     Route: 042
  2. VALPROATE SODIUM [Interacting]
     Active Substance: VALPROATE SODIUM
     Route: 048
  3. VALPROATE SODIUM [Interacting]
     Active Substance: VALPROATE SODIUM
     Dosage: GRADUALLY REDUCED
     Route: 065
  4. WARFARIN SODIUM [Interacting]
     Active Substance: WARFARIN SODIUM
     Indication: Product used for unknown indication
     Dosage: LONG-TERM ADMINISTRATION
     Route: 065

REACTIONS (14)
  - Coagulopathy [Recovered/Resolved]
  - Loss of consciousness [Recovered/Resolved]
  - Muscle fatigue [Unknown]
  - Mental disorder [Unknown]
  - Speech disorder [Unknown]
  - Skin wrinkling [Unknown]
  - Mucosal haemorrhage [Unknown]
  - Atrial enlargement [Unknown]
  - Ventricular septal defect [Unknown]
  - Pulmonary valve incompetence [Unknown]
  - Left ventricular dysfunction [Unknown]
  - Seizure [Recovered/Resolved]
  - Epilepsy [Recovered/Resolved]
  - Drug interaction [Unknown]
